FAERS Safety Report 21876917 (Version 3)
Quarter: 2023Q1

REPORT INFORMATION
  Report Type: Report from Study
  Country: US (occurrence: US)
  Receive Date: 20230118
  Receipt Date: 20230222
  Transmission Date: 20230417
  Serious: Yes (Other)
  Sender: FDA-Public Use
  Company Number: US-002147023-NVSC2023US007747

PATIENT
  Age: 73 Year
  Sex: Male
  Weight: 78.47 kg

DRUGS (12)
  1. COSENTYX [Suspect]
     Active Substance: SECUKINUMAB
     Indication: Psoriasis
     Dosage: 300 MG, Q4W
     Route: 058
     Dates: start: 20161016, end: 20170115
  2. COSENTYX [Suspect]
     Active Substance: SECUKINUMAB
     Dosage: 150 MG, Q4W
     Route: 058
     Dates: start: 20170115, end: 20200831
  3. COSENTYX [Suspect]
     Active Substance: SECUKINUMAB
     Dosage: 300 MG, Q4W
     Route: 058
     Dates: start: 20210601, end: 20230109
  4. COSENTYX [Suspect]
     Active Substance: SECUKINUMAB
     Dosage: 150 MG, Q2W
     Route: 058
     Dates: start: 20230109
  5. TAMSULOSIN [Concomitant]
     Active Substance: TAMSULOSIN
     Indication: Hypertension
     Dosage: 0.4 MG, QD (FROM UNSPECIFIED DATE TO CURRENT)
     Route: 065
  6. HYDROCHLOROTHIAZIDE [Concomitant]
     Active Substance: HYDROCHLOROTHIAZIDE
     Indication: Hypertension
     Dosage: 25 MG, QD (CURRENT)
     Route: 065
     Dates: start: 20220711
  7. ALLOPURINOL [Concomitant]
     Active Substance: ALLOPURINOL
     Indication: Product used for unknown indication
     Dosage: UNK (UNSPECIFIED DOSE, UNSPECIFIED TO CURRENT))
     Route: 065
  8. PREGABALIN [Concomitant]
     Active Substance: PREGABALIN
     Indication: Product used for unknown indication
     Dosage: UNK (UNSPECIFIED DOSE, UNSPECIFIED TO CURRENT)
     Route: 065
  9. CALCITRIOL [Concomitant]
     Active Substance: CALCITRIOL
     Indication: Product used for unknown indication
     Dosage: UNK (UNSPECIFIED DOSE, UNSPECIFIED TO CURRENT)
     Route: 065
  10. DIABETES [Concomitant]
     Indication: Diabetes mellitus
     Dosage: UNK (UNSPECIFIED DOSE, UNSPECIFIED TO CURRENT)
     Route: 065
  11. CHOLESTEROL [Concomitant]
     Active Substance: CHOLESTEROL
     Indication: Hyperlipidaemia
     Dosage: UNK (UNSPECIFIED DOSE, UNSPECIFIED TO CURRENT)
     Route: 065
  12. TRAMADOL [Concomitant]
     Active Substance: TRAMADOL
     Indication: Product used for unknown indication
     Dosage: UNK (UNSPECIFIED DOSE, UNSPECIFIED TO CURRENT)
     Route: 065

REACTIONS (2)
  - Squamous cell carcinoma of skin [Recovered/Resolved]
  - Cellulitis [Recovered/Resolved]

NARRATIVE: CASE EVENT DATE: 20220101
